FAERS Safety Report 8261747 (Version 9)
Quarter: 2013Q1

REPORT INFORMATION
  Report Type: Spontaneous
  Country: US (occurrence: US)
  Receive Date: 20111123
  Receipt Date: 20130122
  Transmission Date: 20140127
  Serious: Yes (Hospitalization, Other)
  Sender: FDA-Public Use
  Company Number: US-US-EMD SERONO, INC.-7097323

PATIENT
  Age: 56 Year
  Sex: Male
  Weight: 88 kg

DRUGS (5)
  1. REBIF [Suspect]
     Indication: MULTIPLE SCLEROSIS
     Route: 058
     Dates: start: 20070517, end: 20110316
  2. REBIF [Suspect]
     Route: 057
     Dates: start: 20111019, end: 201111
  3. REBIF [Suspect]
     Route: 058
     Dates: start: 201205, end: 201207
  4. REBIF [Suspect]
     Route: 058
     Dates: start: 20121226, end: 20121226
  5. REBIF [Suspect]
     Route: 058
     Dates: start: 20130218

REACTIONS (5)
  - Atrial fibrillation [Recovering/Resolving]
  - Ejection fraction decreased [Not Recovered/Not Resolved]
  - Haemoglobin decreased [Unknown]
  - Injection site bruising [Unknown]
  - Inappropriate schedule of drug administration [Not Recovered/Not Resolved]
